FAERS Safety Report 4588395-X (Version None)
Quarter: 2005Q1

REPORT INFORMATION
  Report Type: 
  Country: None (occurrence: None)
  Receive Date: 20050222
  Receipt Date: 20050214
  Transmission Date: 20050727
  Serious: Yes (Other)
  Sender: FDA-Public Use
  Company Number: GB-ABBOTT-05P-167-0290571-00

PATIENT
  Age: 49 Year
  Sex: Female
  Weight: 57 kg

DRUGS (2)
  1. HUMIRA [Suspect]
     Indication: RHEUMATOID ARTHRITIS
     Route: 058
     Dates: start: 20040907, end: 20050118
  2. PREDNISOLONE [Concomitant]
     Indication: RHEUMATOID ARTHRITIS
     Route: 048
     Dates: start: 20040401

REACTIONS (1)
  - HYPOAESTHESIA [None]
